FAERS Safety Report 9026319 (Version 1)
Quarter: 2013Q1

REPORT INFORMATION
  Report Type: Spontaneous
  Country: PL (occurrence: None)
  Receive Date: 20130104
  Receipt Date: 20130104
  Transmission Date: 20140127
  Serious: Yes (Hospitalization)
  Sender: FDA-Public Use
  Company Number: VAL_01232_2012

PATIENT
  Age: 68 Year
  Sex: Male

DRUGS (7)
  1. METOPROLOL [Suspect]
     Indication: PRODUCT USED FOR UNKNOWN INDICATION
  2. SAXAGLIPTIN [Concomitant]
  3. HUMULIN R [Concomitant]
  4. HUMULIN N [Concomitant]
  5. ASPIRIN [Concomitant]
  6. ANGIOTENSIN CONVERTING ENZYME BLOCKERS [Concomitant]
  7. STATINS [Concomitant]

REACTIONS (5)
  - Bradycardia [None]
  - Syncope [None]
  - Ejection fraction decreased [None]
  - Electrocardiogram Q waves [None]
  - Ventricular fibrillation [None]
